FAERS Safety Report 12076426 (Version 2)
Quarter: 2016Q1

REPORT INFORMATION
  Report Type: Spontaneous
  Country: US (occurrence: US)
  Receive Date: 20160215
  Receipt Date: 20160323
  Transmission Date: 20160526
  Serious: Yes (Hospitalization)
  Sender: FDA-Public Use
  Company Number: US-ACCORD-037791

PATIENT
  Age: 89 Year
  Sex: Female

DRUGS (19)
  1. RIVAROXABAN [Concomitant]
     Active Substance: RIVAROXABAN
     Dosage: 15 MG EVERY 24 H
  2. LINEZOLID. [Interacting]
     Active Substance: LINEZOLID
     Indication: ENTEROCOCCAL BACTERAEMIA
     Dosage: 600 MG EVERY 12
  3. PARACETAMOL [Concomitant]
     Active Substance: ACETAMINOPHEN
     Dosage: 650 MG EVERY 4 H AS NEEDED
  4. FUROSEMIDE. [Concomitant]
     Active Substance: FUROSEMIDE
     Dosage: INTRAVENOUS 20 MG EVERY 12 H
     Route: 042
  5. LISINOPRIL. [Concomitant]
     Active Substance: LISINOPRIL
     Dosage: 40 MG EVERY 24 H
  6. BUDESONIDE/FORMOTEROL FUMARATE [Concomitant]
     Dosage: 2 INHALATIONS EVERY 12 H
     Route: 055
  7. SEVELAMER/SEVELAMER HYDROCHLORIDE [Concomitant]
     Dosage: 400 MG THREE TIMES DAILY WITH MEALS
  8. TIOTROPIUM/TIOTROPIUM BROMIDE [Concomitant]
     Dosage: 1 INHALATION EVERY 24 H
     Route: 055
  9. ACETYLSALICYLIC ACID [Concomitant]
     Active Substance: ASPIRIN
     Dosage: 81 MG EVERY 24 H
  10. ONDANSETRON [Concomitant]
     Active Substance: ONDANSETRON
     Dosage: 2 MG EVERY 8 H AS NEEDED
  11. PANTOPRAZOLE [Concomitant]
     Active Substance: PANTOPRAZOLE SODIUM
     Dosage: 40 MG EVERY 24 H
  12. CARBIDOPA/LEVODOPA [Suspect]
     Active Substance: CARBIDOPA\LEVODOPA
     Indication: PARKINSON^S DISEASE
     Dosage: 25-100 MG THREE TIMES DAILY?RECEIVING FOR 6 YEARS
  13. ATORVASTATIN [Concomitant]
     Active Substance: ATORVASTATIN
     Dosage: 40 MG EVERY EVENING
  14. IPRATROPIUM/SALBUTAMOL [Concomitant]
     Dosage: IPRATROPIUM-ALBUTEROL 1 INHALATION EVERY 4 H AS NEEDED
     Route: 055
  15. HEPARIN [Concomitant]
     Active Substance: HEPARIN SODIUM
     Dosage: 5000 UNITS EVERY 8 H
     Route: 058
  16. TRAMADOL. [Concomitant]
     Active Substance: TRAMADOL
     Dosage: 50 MG Q12 H AS NEEDED
  17. CEFEPIME [Concomitant]
     Active Substance: CEFEPIME HYDROCHLORIDE
     Dosage: 1 G EVERY 12 H
  18. METOPROLOL. [Concomitant]
     Active Substance: METOPROLOL
     Dosage: 50 MG EVERY 12 H?25 MG EVERY 12 H HOME MEDICATION
  19. LIDOCAINE. [Concomitant]
     Active Substance: LIDOCAINE
     Dosage: PATCH EVERY 24 H

REACTIONS (2)
  - Drug interaction [Recovered/Resolved]
  - Serotonin syndrome [Recovered/Resolved]

NARRATIVE: CASE EVENT DATE: 201509
